FAERS Safety Report 8118572 (Version 2)
Quarter: 2014Q2

REPORT INFORMATION
  Report Type: Report from Study
  Country: GR (occurrence: GR)
  Receive Date: 20110902
  Receipt Date: 20140428
  Transmission Date: 20141212
  Serious: Yes (Death, Other)
  Sender: FDA-Public Use
  Company Number: GR-ROCHE-799728

PATIENT
  Sex: Female

DRUGS (2)
  1. BEVACIZUMAB [Suspect]
     Indication: BREAST CANCER METASTATIC
     Dosage: DOSE ALSO REPORTED AS 15 UG/KG EVERY THREE WEEKLY.
     Route: 065
  2. PACLITAXEL [Suspect]
     Indication: BREAST CANCER METASTATIC
     Route: 065

REACTIONS (21)
  - Febrile neutropenia [Fatal]
  - Sepsis [Fatal]
  - Respiratory tract infection [Fatal]
  - Leukopenia [Unknown]
  - Neutropenia [Unknown]
  - Bone marrow disorder [Unknown]
  - Blood disorder [Unknown]
  - Angiopathy [Unknown]
  - Metabolic disorder [Unknown]
  - Skin disorder [Unknown]
  - Thrombocytopenia [Unknown]
  - Anaemia [Unknown]
  - Lung disorder [Unknown]
  - Pain [Unknown]
  - Infection [Unknown]
  - Hypertension [Unknown]
  - Neuropathy peripheral [Unknown]
  - Cardiac disorder [Unknown]
  - Gastrointestinal disorder [Unknown]
  - General symptom [Unknown]
  - Haemorrhage [Unknown]
